FAERS Safety Report 23905537 (Version 2)
Quarter: 2024Q2

REPORT INFORMATION
  Report Type: Report from Study
  Country: CA (occurrence: CA)
  Receive Date: 20240527
  Receipt Date: 20240605
  Transmission Date: 20240716
  Serious: Yes (Other)
  Sender: FDA-Public Use
  Company Number: CA-BIOGEN-2024BI01266337

PATIENT
  Age: 32 Year
  Sex: Male

DRUGS (2)
  1. TYSABRI [Suspect]
     Active Substance: NATALIZUMAB
     Indication: Multiple sclerosis
     Route: 050
     Dates: start: 20120709
  2. TYSABRI [Suspect]
     Active Substance: NATALIZUMAB
     Route: 050
     Dates: start: 20120712

REACTIONS (7)
  - Major depression [Unknown]
  - Multiple sclerosis relapse [Not Recovered/Not Resolved]
  - Multiple sclerosis pseudo relapse [Unknown]
  - Multiple sclerosis [Unknown]
  - Fall [Recovered/Resolved]
  - Stress [Unknown]
  - Mental disorder [Unknown]

NARRATIVE: CASE EVENT DATE: 20240301
